FAERS Safety Report 7686662-4 (Version None)
Quarter: 2011Q3

REPORT INFORMATION
  Report Type: 
  Country: None (occurrence: None)
  Receive Date: 20110816
  Receipt Date: 20101109
  Transmission Date: 20111222
  Serious: No
  Sender: FDA-Public Use
  Company Number: US-BAYER-201040860NA

PATIENT
  Age: 36 Year
  Sex: Female

DRUGS (2)
  1. MIRENA [Suspect]
     Indication: CONTRACEPTION
     Dosage: 24 MCG/24HR, CONT
     Route: 015
     Dates: start: 20100920, end: 20101103
  2. MIRENA [Suspect]
     Dosage: 24 MCG/24HR, CONT
     Route: 015
     Dates: start: 20101104, end: 20101216

REACTIONS (1)
  - DEVICE EXPULSION [None]
